FAERS Safety Report 22268395 (Version 1)
Quarter: 2023Q2

REPORT INFORMATION
  Report Type: Spontaneous
  Country: US (occurrence: US)
  Receive Date: 20230430
  Receipt Date: 20230430
  Transmission Date: 20230721
  Serious: No
  Sender: FDA-Public Use
  Company Number: US-SA-SAC20230425001631

PATIENT
  Sex: Male

DRUGS (2)
  1. FABRAZYME [Suspect]
     Active Substance: AGALSIDASE BETA
     Indication: Fabry^s disease
     Dosage: 70 MG, QOW
     Route: 042
     Dates: start: 20200123
  2. FABRAZYME [Suspect]
     Active Substance: AGALSIDASE BETA
     Dosage: 10 MG, QOW (STRENGTH: 5 MG)
     Route: 042

REACTIONS (1)
  - Illness [Unknown]
